FAERS Safety Report 23163048 (Version 1)
Quarter: 2023Q4

REPORT INFORMATION
  Report Type: Spontaneous
  Country: CN (occurrence: CN)
  Receive Date: 20231109
  Receipt Date: 20231109
  Transmission Date: 20240110
  Serious: Yes (Death, Life-Threatening, Hospitalization)
  Sender: FDA-Public Use
  Company Number: CN-STRIDES ARCOLAB LIMITED-2023SP016592

PATIENT
  Age: 71 Year
  Sex: Male

DRUGS (28)
  1. PREDNISOLONE [Suspect]
     Active Substance: PREDNISOLONE
     Indication: Facial paralysis
     Dosage: 50 MILLIGRAM PER DAY
     Route: 065
     Dates: start: 2022
  2. PREDNISOLONE [Suspect]
     Active Substance: PREDNISOLONE
     Indication: Myocarditis
  3. MYCOPHENOLATE MOFETIL [Suspect]
     Active Substance: MYCOPHENOLATE MOFETIL
     Indication: Myocarditis
     Dosage: 1000 MILLIGRAM, BID (ADDED ON DAY 6)
     Route: 065
     Dates: start: 2022
  4. DEXAMETHASONE [Suspect]
     Active Substance: DEXAMETHASONE
     Indication: T-cell lymphoma
     Dosage: UNK
     Route: 065
     Dates: start: 202004, end: 202012
  5. DEXAMETHASONE [Suspect]
     Active Substance: DEXAMETHASONE
     Indication: Renal cell carcinoma
  6. DEXAMETHASONE [Suspect]
     Active Substance: DEXAMETHASONE
     Indication: Small cell lung cancer
  7. ETOPOSIDE [Suspect]
     Active Substance: ETOPOSIDE
     Indication: T-cell lymphoma
     Dosage: UNK
     Route: 065
     Dates: start: 202004, end: 202012
  8. ETOPOSIDE [Suspect]
     Active Substance: ETOPOSIDE
     Indication: Renal cell carcinoma
  9. ETOPOSIDE [Suspect]
     Active Substance: ETOPOSIDE
     Indication: Small cell lung cancer
  10. METHOTREXATE [Suspect]
     Active Substance: METHOTREXATE
     Indication: T-cell lymphoma
     Dosage: UNK
     Route: 065
     Dates: start: 202004, end: 202012
  11. METHOTREXATE [Suspect]
     Active Substance: METHOTREXATE
     Indication: Renal cell carcinoma
  12. METHOTREXATE [Suspect]
     Active Substance: METHOTREXATE
     Indication: Small cell lung cancer
  13. IFOSFAMIDE [Suspect]
     Active Substance: IFOSFAMIDE
     Indication: T-cell lymphoma
     Dosage: UNK
     Route: 065
     Dates: start: 202004, end: 202012
  14. IFOSFAMIDE [Suspect]
     Active Substance: IFOSFAMIDE
     Indication: Renal cell carcinoma
  15. IFOSFAMIDE [Suspect]
     Active Substance: IFOSFAMIDE
     Indication: Small cell lung cancer
  16. ASPARAGINASE [Suspect]
     Active Substance: ASPARAGINASE
     Indication: T-cell lymphoma
     Dosage: UNK
     Route: 065
     Dates: start: 202004, end: 202012
  17. ASPARAGINASE [Suspect]
     Active Substance: ASPARAGINASE
     Indication: Renal cell carcinoma
  18. ASPARAGINASE [Suspect]
     Active Substance: ASPARAGINASE
     Indication: Small cell lung cancer
  19. METHYLPREDNISOLONE [Suspect]
     Active Substance: METHYLPREDNISOLONE
     Indication: Myocarditis
     Dosage: 1000 MILLIGRAM PER DAY (PULSE STEROID)
     Route: 065
     Dates: start: 2022, end: 2022
  20. METHYLPREDNISOLONE [Suspect]
     Active Substance: METHYLPREDNISOLONE
     Dosage: 1 MILLIGRAM/KILOGRAM (PER DAY) (DAY 4 ONWARDS)
     Route: 065
     Dates: start: 2022
  21. NOREPINEPHRINE [Suspect]
     Active Substance: NOREPINEPHRINE
     Indication: Myocarditis
     Dosage: UNK
     Route: 065
     Dates: start: 2022
  22. DOPAMINE [Suspect]
     Active Substance: DOPAMINE HYDROCHLORIDE
     Indication: Myocarditis
     Dosage: UNK
     Route: 065
     Dates: start: 2022
  23. BASILIXIMAB [Suspect]
     Active Substance: BASILIXIMAB
     Indication: Myocarditis
     Dosage: 20 MILLIGRAM, EVERY 4 DAYS, 2 DOSES
     Route: 042
     Dates: start: 2022
  24. THYROXINE [Concomitant]
     Active Substance: LEVOTHYROXINE
     Indication: Hypothyroidism
     Dosage: UNK
     Route: 065
     Dates: start: 2022
  25. PEMBROLIZUMAB [Concomitant]
     Active Substance: PEMBROLIZUMAB
     Indication: T-cell lymphoma
     Dosage: 200 MILLIGRAM, EVERY 4 WEEKS (RECEIVED 13 DOSES)
     Route: 065
     Dates: start: 202103, end: 202201
  26. PEMBROLIZUMAB [Concomitant]
     Active Substance: PEMBROLIZUMAB
     Indication: Renal cell carcinoma
  27. PEMBROLIZUMAB [Concomitant]
     Active Substance: PEMBROLIZUMAB
     Indication: Small cell lung cancer
  28. HYDROCORTISONE [Concomitant]
     Active Substance: HYDROCORTISONE
     Indication: Adrenal insufficiency
     Dosage: UNK
     Route: 065
     Dates: start: 2022

REACTIONS (4)
  - Drug ineffective [Fatal]
  - Condition aggravated [Fatal]
  - Malignant neoplasm progression [Unknown]
  - Off label use [Unknown]
